FAERS Safety Report 17990845 (Version 9)
Quarter: 2023Q2

REPORT INFORMATION
  Report Type: Spontaneous
  Country: JP (occurrence: JP)
  Receive Date: 20200707
  Receipt Date: 20230613
  Transmission Date: 20230721
  Serious: Yes (Hospitalization, Other)
  Sender: FDA-Public Use
  Company Number: JP-MSD-M2020-09258

PATIENT
  Age: 73 Year
  Sex: Male

DRUGS (6)
  1. KEYTRUDA [Suspect]
     Active Substance: PEMBROLIZUMAB
     Indication: Renal cell carcinoma stage IV
     Dosage: 200 MILLIGRAM, Q3W
     Route: 041
     Dates: start: 20200330, end: 2020
  2. KEYTRUDA [Suspect]
     Active Substance: PEMBROLIZUMAB
     Dosage: 200 MILLIGRAM, Q3W
     Route: 041
     Dates: start: 202006, end: 202011
  3. INLYTA [Suspect]
     Active Substance: AXITINIB
     Indication: Renal cell carcinoma stage IV
     Dosage: 5 MILLIGRAM, BID
     Route: 048
     Dates: start: 20200401, end: 20200512
  4. INLYTA [Suspect]
     Active Substance: AXITINIB
     Dosage: 8 MILLIGRAM
     Route: 048
     Dates: start: 20200513, end: 20200603
  5. INLYTA [Suspect]
     Active Substance: AXITINIB
     Dosage: 6 MILLIGRAM, DAILY
     Route: 048
     Dates: start: 202006, end: 2020
  6. CABOZANTINIB S-MALATE [Suspect]
     Active Substance: CABOZANTINIB S-MALATE
     Indication: Renal cell carcinoma stage IV
     Dosage: 20 MILLIGRAM, QD
     Route: 065
     Dates: start: 2021, end: 2021

REACTIONS (5)
  - Ulcer [Unknown]
  - Hyperthyroidism [Recovering/Resolving]
  - Immune-mediated hepatic disorder [Recovered/Resolved]
  - Immune-mediated hepatic disorder [Recovering/Resolving]
  - Impaired healing [Unknown]

NARRATIVE: CASE EVENT DATE: 20200513
